FAERS Safety Report 22182905 (Version 2)
Quarter: 2023Q2

REPORT INFORMATION
  Report Type: Spontaneous
  Country: US (occurrence: US)
  Receive Date: 20230406
  Receipt Date: 20230425
  Transmission Date: 20230721
  Serious: No
  Sender: FDA-Public Use
  Company Number: US-ALLERGAN-2301366US

PATIENT
  Sex: Male
  Weight: 99.79 kg

DRUGS (5)
  1. QULIPTA [Suspect]
     Active Substance: ATOGEPANT
     Indication: Cluster headache
     Dosage: UNK
     Dates: start: 20221101
  2. QULIPTA [Suspect]
     Active Substance: ATOGEPANT
     Dosage: 60 MG, QD
     Route: 048
     Dates: start: 20221212, end: 20221220
  3. SUMATRIPTAN [Concomitant]
     Active Substance: SUMATRIPTAN
     Indication: Product used for unknown indication
     Dosage: NASAL SPRAY
  4. SUMATRIPTAN [Concomitant]
     Active Substance: SUMATRIPTAN
     Dosage: TABLET  ,~AS NEEDED
     Route: 048
  5. EMGALITY [Concomitant]
     Active Substance: GALCANEZUMAB-GNLM
     Indication: Product used for unknown indication
     Dosage: UNK, Q3MONTHS

REACTIONS (3)
  - Product use issue [Unknown]
  - Off label use [Unknown]
  - Cluster headache [Unknown]
